FAERS Safety Report 9858475 (Version 3)
Quarter: 2014Q3

REPORT INFORMATION
  Report Type: Other
  Country: IT (occurrence: IT)
  Receive Date: 20140131
  Receipt Date: 20140730
  Transmission Date: 20150326
  Serious: Yes (Life-Threatening)
  Sender: FDA-Public Use
  Company Number: IT-MPIJNJ-2014JNJ000195

PATIENT

DRUGS (2)
  1. VELCADE [Suspect]
     Active Substance: BORTEZOMIB
     Indication: PLASMA CELL MYELOMA
     Dosage: 2.34 MG, UNK
     Route: 042
     Dates: start: 20131105, end: 20131227
  2. METHOTREXATE [Concomitant]
     Active Substance: METHOTREXATE
     Indication: PSORIATIC ARTHROPATHY
     Route: 048

REACTIONS (1)
  - Vasculitis [Recovering/Resolving]

NARRATIVE: CASE EVENT DATE: 20131203
